FAERS Safety Report 5291457-5 (Version None)
Quarter: 2007Q2

REPORT INFORMATION
  Report Type: 
  Country: None (occurrence: None)
  Receive Date: 20070403
  Receipt Date: 20070321
  Transmission Date: 20071010
  Serious: Yes (Hospitalization)
  Sender: FDA-Public Use
  Company Number: 2006-149793-NL

PATIENT
  Age: 29 Year
  Sex: Female
  Weight: 79.4 kg

DRUGS (2)
  1. NUVARING [Suspect]
     Indication: CONTRACEPTION
     Dosage: VAGINAL
     Route: 067
     Dates: start: 20050621, end: 20050913
  2. LEVAQUIN [Concomitant]

REACTIONS (2)
  - FACTOR V LEIDEN MUTATION [None]
  - PULMONARY EMBOLISM [None]
